FAERS Safety Report 18739154 (Version 1)
Quarter: 2021Q1

REPORT INFORMATION
  Report Type: Spontaneous
  Country: BE (occurrence: BE)
  Receive Date: 20210114
  Receipt Date: 20210114
  Transmission Date: 20210419
  Serious: Yes (Other)
  Sender: FDA-Public Use
  Company Number: BE-PFIZER INC-2021016368

PATIENT
  Age: 15 Year
  Sex: Male

DRUGS (5)
  1. SOMAVERT [Suspect]
     Active Substance: PEGVISOMANT
     Dosage: 20 MG, 1X/DAY
     Route: 058
     Dates: start: 20190501
  2. L?THYROXINE [LEVOTHYROXINE] [Concomitant]
     Active Substance: LEVOTHYROXINE
     Dosage: 100 UG, 1X/DAY
  3. PASIREOTIDE. [Concomitant]
     Active Substance: PASIREOTIDE
     Dosage: 40 MG, EVERY 4 WEEKS
  4. HYDROCORTISONE. [Concomitant]
     Active Substance: HYDROCORTISONE
     Dosage: 10 MG, 2X/DAY
  5. SUSTANON [TESTOSTERONE CAPRINOYLACETATE;TESTOSTERONE ISOCAPROATE;TESTO [Concomitant]
     Dosage: 250 MG, EVERY TWO WEEKS
     Route: 058

REACTIONS (2)
  - Syncope [Recovering/Resolving]
  - Sinus bradycardia [Unknown]

NARRATIVE: CASE EVENT DATE: 20210108
